FAERS Safety Report 5999873-0 (Version None)
Quarter: 2008Q4

REPORT INFORMATION
  Report Type: 
  Country: None (occurrence: None)
  Receive Date: 20081211
  Receipt Date: 20080813
  Transmission Date: 20090506
  Serious: No
  Sender: FDA-Public Use
  Company Number: US024369

PATIENT
  Age: 78 Year
  Sex: Male

DRUGS (6)
  1. TREANDA [Suspect]
     Indication: NON-HODGKIN'S LYMPHOMA
     Dosage: 185 MG QD INTRAVENOUS
     Route: 042
     Dates: start: 20080528, end: 20080529
  2. ACYCLOVIR [Concomitant]
  3. COMPAZINE [Concomitant]
  4. LEVAQUIN [Concomitant]
  5. OXYCODONE HCL [Concomitant]
  6. ZOFRAN [Concomitant]

REACTIONS (4)
  - ANOREXIA [None]
  - DYSGEUSIA [None]
  - MALAISE [None]
  - PAROSMIA [None]
